FAERS Safety Report 21602828 (Version 3)
Quarter: 2022Q4

REPORT INFORMATION
  Report Type: Report from Study
  Country: US (occurrence: US)
  Receive Date: 20221116
  Receipt Date: 20221222
  Transmission Date: 20230113
  Serious: Yes (Hospitalization)
  Sender: FDA-Public Use
  Company Number: US-002147023-NVSC2022US254230

PATIENT
  Sex: Female

DRUGS (2)
  1. ENTRESTO [Suspect]
     Active Substance: SACUBITRIL\VALSARTAN
     Indication: Product used for unknown indication
     Dosage: 1 DOSAGE FORM, BID
     Route: 048
  2. UNSPECIFIED INGREDIENT [Suspect]
     Active Substance: UNSPECIFIED INGREDIENT
     Indication: Product used for unknown indication
     Dosage: UNK
     Route: 065

REACTIONS (10)
  - Pulmonary oedema [Unknown]
  - Nocturnal dyspnoea [Unknown]
  - Dyspnoea [Unknown]
  - Depressed mood [Unknown]
  - Productive cough [Unknown]
  - Confusional state [Unknown]
  - Urinary incontinence [Unknown]
  - Pollakiuria [Unknown]
  - Abdominal distension [Unknown]
  - Blood potassium increased [Unknown]
